FAERS Safety Report 7112922-1 (Version None)
Quarter: 2010Q4

REPORT INFORMATION
  Report Type: 
  Country: None (occurrence: None)
  Receive Date: 20101119
  Receipt Date: 20100830
  Transmission Date: 20110411
  Serious: No
  Sender: FDA-Public Use
  Company Number: US-BRISTOL-MYERS SQUIBB COMPANY-15258510

PATIENT
  Sex: Female

DRUGS (1)
  1. AVALIDE [Suspect]
     Dosage: 1 DF = 300/12.5 (UNIT UNSPECIFIED).

REACTIONS (2)
  - DIZZINESS POSTURAL [None]
  - VERTIGO POSITIONAL [None]
